FAERS Safety Report 17901246 (Version 3)
Quarter: 2020Q4

REPORT INFORMATION
  Report Type: Spontaneous
  Country: US (occurrence: US)
  Receive Date: 20200616
  Receipt Date: 20201009
  Transmission Date: 20210113
  Serious: Yes (Hospitalization, Other)
  Sender: FDA-Public Use
  Company Number: US-PERRIGO-20US008328

PATIENT
  Age: 74 Year
  Sex: Male

DRUGS (6)
  1. PREVACID 24 HR [Suspect]
     Active Substance: LANSOPRAZOLE
     Indication: GASTROOESOPHAGEAL REFLUX DISEASE
     Dosage: 15 MG
     Route: 048
     Dates: start: 20090518, end: 2017
  2. PREVACID 24 HR [Suspect]
     Active Substance: LANSOPRAZOLE
     Indication: DYSPEPSIA
  3. PRILOSEC OTC [Suspect]
     Active Substance: OMEPRAZOLE MAGNESIUM
     Indication: DYSPEPSIA
  4. NEXIUM 24HR [Suspect]
     Active Substance: ESOMEPRAZOLE MAGNESIUM
     Indication: DYSPEPSIA
  5. NEXIUM 24HR [Suspect]
     Active Substance: ESOMEPRAZOLE MAGNESIUM
     Indication: GASTROOESOPHAGEAL REFLUX DISEASE
     Dosage: 20 MG
     Route: 065
     Dates: start: 2009, end: 2017
  6. PRILOSEC OTC [Suspect]
     Active Substance: OMEPRAZOLE MAGNESIUM
     Indication: GASTROOESOPHAGEAL REFLUX DISEASE
     Dosage: 20 MG
     Route: 065
     Dates: start: 2009, end: 2017

REACTIONS (22)
  - Colon adenoma [Unknown]
  - Iron deficiency anaemia [Unknown]
  - Gastric neoplasm [Unknown]
  - Neoplasm [Unknown]
  - Diverticulum intestinal [Unknown]
  - Adenocarcinoma gastric [Unknown]
  - Ureterolithiasis [Unknown]
  - Vomiting [Unknown]
  - Renal cyst [Unknown]
  - Stomach mass [Unknown]
  - Gastric cancer [Not Recovered/Not Resolved]
  - Gastrectomy [Unknown]
  - Loss of consciousness [Unknown]
  - Pollakiuria [Unknown]
  - Gastric cancer stage IV [Unknown]
  - Metastatic gastric cancer [Unknown]
  - Nephrolithiasis [Unknown]
  - Anaemia [Unknown]
  - Renal disorder [Unknown]
  - Renal injury [Unknown]
  - Hyperchlorhydria [Unknown]
  - Chronic gastritis [Unknown]

NARRATIVE: CASE EVENT DATE: 20161224
